FAERS Safety Report 6671636-2 (Version None)
Quarter: 2010Q2

REPORT INFORMATION
  Report Type: 
  Country: None (occurrence: None)
  Receive Date: 20100406
  Receipt Date: 20100406
  Transmission Date: 20101027
  Serious: Yes (Other)
  Sender: FDA-Public Use
  Company Number: None

PATIENT

DRUGS (4)
  1. AZITHROMYCIN [Suspect]
     Indication: INFECTION
     Dosage: 500MG IVPB
     Route: 042
     Dates: start: 20100305
  2. RECEPHIN [Concomitant]
  3. AMBIEN [Concomitant]
  4. SOLU-MEDROL [Concomitant]

REACTIONS (1)
  - INFUSION SITE PAIN [None]
